FAERS Safety Report 7043294-9 (Version None)
Quarter: 2010Q4

REPORT INFORMATION
  Report Type: 
  Country: None (occurrence: None)
  Receive Date: 20101013
  Receipt Date: 20091002
  Transmission Date: 20110411
  Serious: No
  Sender: FDA-Public Use
  Company Number: US-ASTRAZENECA-2009SE17633

PATIENT
  Age: 35 Year
  Sex: Male
  Weight: 81.6 kg

DRUGS (5)
  1. SYMBICORT [Suspect]
     Dosage: 4 PUFFS
     Route: 055
     Dates: start: 20080101
  2. ZYRTEC [Concomitant]
     Indication: HYPERSENSITIVITY
  3. SINGULAIR [Concomitant]
  4. AZOR [Concomitant]
     Indication: BLOOD PRESSURE
  5. ALBUTEROL [Concomitant]

REACTIONS (2)
  - DRUG INEFFECTIVE [None]
  - PULMONARY CONGESTION [None]
